FAERS Safety Report 13031674 (Version 1)
Quarter: 2016Q4

REPORT INFORMATION
  Report Type: Spontaneous
  Country: US (occurrence: US)
  Receive Date: 20161215
  Receipt Date: 20161215
  Transmission Date: 20170207
  Serious: Yes (Other)
  Sender: FDA-Public Use
  Company Number: US-ALLERGAN-1000082747

PATIENT
  Age: 15 Year
  Sex: Female

DRUGS (8)
  1. ARMOUR THYROID [Suspect]
     Active Substance: THYROID, PORCINE
     Indication: TEMPERATURE INTOLERANCE
  2. ARMOUR THYROID [Suspect]
     Active Substance: THYROID, PORCINE
     Indication: DEPRESSED MOOD
  3. ADRENAL CORTEX SUPPLEMENT [Concomitant]
     Indication: SUPPLEMENTATION THERAPY
     Dosage: UNK
  4. FISH OIL [Concomitant]
     Active Substance: FISH OIL
     Indication: SUPPLEMENTATION THERAPY
     Dosage: UNK
  5. ARMOUR THYROID [Suspect]
     Active Substance: THYROID, PORCINE
     Indication: HYPOTHYROIDISM
     Dosage: 30 MG, QD
     Route: 048
     Dates: end: 20160216
  6. MAGNESIUM [Concomitant]
     Active Substance: MAGNESIUM
     Indication: SUPPLEMENTATION THERAPY
     Dosage: UNK
  7. ARMOUR THYROID [Suspect]
     Active Substance: THYROID, PORCINE
     Indication: LETHARGY
  8. OREGANO OIL [Concomitant]
     Indication: SUPPLEMENTATION THERAPY
     Dosage: UNK

REACTIONS (7)
  - Lethargy [Unknown]
  - Abdominal pain [Unknown]
  - Nausea [Unknown]
  - Temperature intolerance [Unknown]
  - Mood swings [Unknown]
  - Headache [Unknown]
  - Blindness transient [Unknown]

NARRATIVE: CASE EVENT DATE: 201602
